FAERS Safety Report 4765207-2 (Version None)
Quarter: 2005Q3

REPORT INFORMATION
  Report Type: 
  Country: None (occurrence: None)
  Receive Date: 20050906
  Receipt Date: 20050824
  Transmission Date: 20060218
  Serious: Yes (Hospitalization, Other)
  Sender: FDA-Public Use
  Company Number: 2005120387

PATIENT
  Sex: Female

DRUGS (8)
  1. FLAGYL [Suspect]
     Indication: HELICOBACTER INFECTION
     Dates: start: 20020101
  2. METRONIDAZOLE [Suspect]
     Indication: CLOSTRIDIAL INFECTION
     Dosage: 1500 MG (500 MG, TID INTERVAL: EVERY DAY) ORAL
     Route: 048
     Dates: start: 20050805
  3. VITAMIN B (VITAMIN B) [Concomitant]
  4. ^HERBS FOR LIVER^ (HERBAL PREPARATION) [Concomitant]
  5. VITAMIN E [Concomitant]
  6. COD LIVER OILL (COD-LIVER OIL) [Concomitant]
  7. ATIVAN [Concomitant]
  8. PREVACID [Concomitant]

REACTIONS (14)
  - APPENDICITIS PERFORATED [None]
  - ARTHRALGIA [None]
  - BALANCE DISORDER [None]
  - CLOSTRIDIAL INFECTION [None]
  - DIARRHOEA [None]
  - DIZZINESS [None]
  - DRY SKIN [None]
  - FEELING HOT [None]
  - INFECTION [None]
  - MALAISE [None]
  - NERVOUSNESS [None]
  - OEDEMA PERIPHERAL [None]
  - SKIN EXFOLIATION [None]
  - UNDERDOSE [None]
